FAERS Safety Report 20577156 (Version 3)
Quarter: 2022Q1

REPORT INFORMATION
  Report Type: Report from Study
  Country: US (occurrence: US)
  Receive Date: 20220310
  Receipt Date: 20220325
  Transmission Date: 20220423
  Serious: Yes (Death, Life-Threatening, Hospitalization, Other)
  Sender: FDA-Public Use
  Company Number: US-EXELIXIS-CABO-22049505

PATIENT
  Age: 10 Year
  Sex: Male
  Weight: 33.9 kg

DRUGS (12)
  1. CABOMETYX [Suspect]
     Active Substance: CABOZANTINIB S-MALATE
     Indication: Nephroblastoma
     Dosage: 60 MG, QD (MON, TUE, WED, FRI, SAT,SUN- 6 OUTOF 7 DAYS)
     Route: 048
     Dates: start: 202111, end: 20220210
  2. CABOMETYX [Suspect]
     Active Substance: CABOZANTINIB S-MALATE
     Indication: Metastases to central nervous system
  3. CABOMETYX [Suspect]
     Active Substance: CABOZANTINIB S-MALATE
     Indication: Metastases to lung
  4. MELATONIN [Concomitant]
     Active Substance: MELATONIN
     Indication: Sleep disorder
     Dosage: UNK
  5. SULFAMETHOXAZOLE AND TRIMETHOPRIM [Concomitant]
     Active Substance: SULFAMETHOXAZOLE\TRIMETHOPRIM
     Indication: Bacterial infection
     Dosage: UNK
  6. ZITHROMAX [Concomitant]
     Active Substance: AZITHROMYCIN DIHYDRATE
     Indication: Bacterial infection
     Dosage: UNK
  7. ZOFRAN [Concomitant]
     Active Substance: ONDANSETRON HYDROCHLORIDE
     Indication: Nausea
  8. ZOFRAN [Concomitant]
     Active Substance: ONDANSETRON HYDROCHLORIDE
     Indication: Vomiting
  9. ATIVAN [Concomitant]
     Active Substance: LORAZEPAM
     Indication: Anxiety
     Dosage: UNK
  10. CHILDRENS TYLENOL [Concomitant]
     Active Substance: ACETAMINOPHEN
     Indication: Pyrexia
     Dosage: UNK
  11. SENEXON [Concomitant]
     Active Substance: SENNOSIDES A AND B
     Indication: Constipation
     Dosage: UNK
  12. DOCUSATE SODIUM [Concomitant]
     Active Substance: DOCUSATE SODIUM

REACTIONS (36)
  - Pneumothorax [Unknown]
  - Hypophagia [Unknown]
  - Malnutrition [Unknown]
  - Pericardial effusion [Unknown]
  - Shock [Unknown]
  - Circulatory collapse [Unknown]
  - Thrombocytopenia [Unknown]
  - Dehydration [Unknown]
  - Acute respiratory distress syndrome [Fatal]
  - Metastases to lung [Fatal]
  - Tachycardia [Unknown]
  - Anxiety [Unknown]
  - Pleural effusion [Unknown]
  - Atelectasis [Unknown]
  - Periorbital oedema [Unknown]
  - Left ventricular dysfunction [Unknown]
  - Nephrocalcinosis [Unknown]
  - Pulmonary oedema [Recovering/Resolving]
  - Exposure keratitis [Recovered/Resolved]
  - Neutrophil count increased [Unknown]
  - Hair colour changes [Unknown]
  - Blood pressure decreased [Unknown]
  - Decreased appetite [Unknown]
  - Diarrhoea [Recovered/Resolved]
  - Weight decreased [Unknown]
  - Haemoglobin decreased [Unknown]
  - Blood calcium decreased [Unknown]
  - Blood phosphorus decreased [Unknown]
  - Aspartate aminotransferase increased [Recovering/Resolving]
  - White blood cell count decreased [Unknown]
  - Hyperglycaemia [Unknown]
  - Anuria [Unknown]
  - Alanine aminotransferase increased [Recovering/Resolving]
  - COVID-19 [Recovered/Resolved]
  - Inappropriate schedule of product administration [Unknown]
  - Off label use [Unknown]

NARRATIVE: CASE EVENT DATE: 20211101
